FAERS Safety Report 11440788 (Version 1)
Quarter: 2015Q3

REPORT INFORMATION
  Report Type: Spontaneous
  Country: US (occurrence: None)
  Receive Date: 20150831
  Receipt Date: 20150831
  Transmission Date: 20151125
  Serious: Yes (Other)
  Sender: FDA-Public Use
  Company Number: None

PATIENT
  Age: 46 Year
  Sex: Male
  Weight: 86.18 kg

DRUGS (4)
  1. QUETIAPINE [Concomitant]
     Active Substance: QUETIAPINE
  2. ASPIRIN. [Concomitant]
     Active Substance: ASPIRIN
  3. QUETIAPINE FUMARATE. [Suspect]
     Active Substance: QUETIAPINE FUMARATE
     Indication: BIPOLAR DISORDER
     Dosage: 200 M ONCE DAILY TAKEN BY MOUTH
     Route: 048
     Dates: start: 20150824, end: 20150828
  4. LISINOPRIL. [Concomitant]
     Active Substance: LISINOPRIL

REACTIONS (5)
  - Product substitution issue [None]
  - Drug ineffective [None]
  - Insomnia [None]
  - Self-injurious ideation [None]
  - Depression [None]

NARRATIVE: CASE EVENT DATE: 20150828
